FAERS Safety Report 22596638 (Version 13)
Quarter: 2025Q3

REPORT INFORMATION
  Report Type: Spontaneous
  Country: CA (occurrence: EU)
  Receive Date: 20230613
  Receipt Date: 20250714
  Transmission Date: 20251021
  Serious: Yes (Death, Life-Threatening, Hospitalization, Disabling, Congenital Anomaly, Other)
  Sender: ELI LILLY AND COMPANY
  Company Number: CA-ELI_LILLY_AND_COMPANY-CA202306004282

PATIENT
  Age: 80 Year
  Sex: Male
  Weight: 69 kg

DRUGS (356)
  1. HUMULIN N [Suspect]
     Active Substance: INSULIN HUMAN
     Indication: Diabetes mellitus
     Route: 065
  2. DOBUTAMINE HYDROCHLORIDE [Suspect]
     Active Substance: DOBUTAMINE HYDROCHLORIDE
     Indication: Cardiogenic shock
     Dosage: UNK, DAILY
     Route: 042
  3. DOBUTAMINE HYDROCHLORIDE [Suspect]
     Active Substance: DOBUTAMINE HYDROCHLORIDE
     Route: 042
  4. DOBUTAMINE HYDROCHLORIDE [Suspect]
     Active Substance: DOBUTAMINE HYDROCHLORIDE
     Route: 048
  5. ALLOPURINOL [Suspect]
     Active Substance: ALLOPURINOL
     Indication: Blood uric acid increased
     Dosage: 1 DOSAGE FORM, DAILY
     Route: 048
  6. ALLOPURINOL [Suspect]
     Active Substance: ALLOPURINOL
     Dosage: 1 DOSAGE FORM, DAILY
     Route: 048
  7. AMINOBENZOIC ACID [Suspect]
     Active Substance: AMINOBENZOIC ACID
     Indication: Product used for unknown indication
     Route: 065
  8. AMIODARONE HYDROCHLORIDE [Suspect]
     Active Substance: AMIODARONE HYDROCHLORIDE
     Indication: Ventricular fibrillation
     Dosage: 1 DOSAGE FORM, DAILY
     Route: 042
  9. AMIODARONE HYDROCHLORIDE [Suspect]
     Active Substance: AMIODARONE HYDROCHLORIDE
     Indication: Drug therapy
     Route: 042
  10. AMIODARONE HYDROCHLORIDE [Suspect]
     Active Substance: AMIODARONE HYDROCHLORIDE
     Route: 065
  11. AMIODARONE HYDROCHLORIDE [Suspect]
     Active Substance: AMIODARONE HYDROCHLORIDE
     Dosage: 1 DOSAGE FORM, DAILY
     Route: 065
  12. AMIODARONE HYDROCHLORIDE [Suspect]
     Active Substance: AMIODARONE HYDROCHLORIDE
     Dosage: 150 MG, DAILY
     Route: 042
  13. AMIODARONE HYDROCHLORIDE [Suspect]
     Active Substance: AMIODARONE HYDROCHLORIDE
     Dosage: 150 MG, DAILY
     Route: 042
  14. AMIODARONE HYDROCHLORIDE [Suspect]
     Active Substance: AMIODARONE HYDROCHLORIDE
     Route: 042
  15. AMMONIUM CHLORIDE\CHLORPHENIRAMINE\CODEINE\EPHEDRINE [Suspect]
     Active Substance: AMMONIUM CHLORIDE\CHLORPHENIRAMINE\CODEINE\EPHEDRINE
     Indication: Thrombosis
     Dosage: 2.5 ML, DAILY
     Route: 048
  16. AMMONIUM CHLORIDE\CHLORPHENIRAMINE\CODEINE\EPHEDRINE [Suspect]
     Active Substance: AMMONIUM CHLORIDE\CHLORPHENIRAMINE\CODEINE\EPHEDRINE
     Route: 048
  17. DISODIUM HYDROGEN CITRATE [Suspect]
     Active Substance: DISODIUM HYDROGEN CITRATE
     Indication: Thrombosis
     Route: 065
  18. DISODIUM HYDROGEN CITRATE [Suspect]
     Active Substance: DISODIUM HYDROGEN CITRATE
     Route: 065
  19. DISODIUM HYDROGEN CITRATE [Suspect]
     Active Substance: DISODIUM HYDROGEN CITRATE
     Route: 065
  20. DISODIUM HYDROGEN CITRATE [Suspect]
     Active Substance: DISODIUM HYDROGEN CITRATE
     Route: 065
  21. DISODIUM HYDROGEN CITRATE [Suspect]
     Active Substance: DISODIUM HYDROGEN CITRATE
     Dosage: 2.5 ML, DAILY
     Route: 065
  22. ARANESP [Suspect]
     Active Substance: DARBEPOETIN ALFA
     Indication: Anaemia
     Dosage: 20 MG, WEEKLY (1/W)
     Route: 042
  23. ARANESP [Suspect]
     Active Substance: DARBEPOETIN ALFA
     Dosage: 10 MG, WEEKLY (1/W)
     Route: 042
  24. ARANESP [Suspect]
     Active Substance: DARBEPOETIN ALFA
     Route: 042
  25. ARANESP [Suspect]
     Active Substance: DARBEPOETIN ALFA
     Route: 042
  26. ARANESP [Suspect]
     Active Substance: DARBEPOETIN ALFA
     Route: 065
  27. ARANESP [Suspect]
     Active Substance: DARBEPOETIN ALFA
     Dosage: 1 DOSAGE FORM, WEEKLY (1/W)
     Route: 065
  28. ARANESP [Suspect]
     Active Substance: DARBEPOETIN ALFA
     Route: 042
  29. ARANESP [Suspect]
     Active Substance: DARBEPOETIN ALFA
     Route: 042
  30. ARANESP [Suspect]
     Active Substance: DARBEPOETIN ALFA
     Dosage: 0.2 MG, WEEKLY (1/W)
     Route: 065
  31. ARANESP [Suspect]
     Active Substance: DARBEPOETIN ALFA
     Route: 017
  32. ARANESP [Suspect]
     Active Substance: DARBEPOETIN ALFA
     Dosage: 10 MG, 2/W
     Route: 042
  33. ARANESP [Suspect]
     Active Substance: DARBEPOETIN ALFA
     Dosage: 1 DOSAGE FORM, WEEKLY (1/W)
     Route: 042
  34. ARANESP [Suspect]
     Active Substance: DARBEPOETIN ALFA
     Dosage: 0.71 UG, DAILY
     Route: 042
  35. ARANESP [Suspect]
     Active Substance: DARBEPOETIN ALFA
     Route: 042
  36. ARANESP [Suspect]
     Active Substance: DARBEPOETIN ALFA
     Dosage: 10 MG, WEEKLY (1/W)
     Route: 042
  37. ARANESP [Suspect]
     Active Substance: DARBEPOETIN ALFA
     Route: 042
  38. ARANESP [Suspect]
     Active Substance: DARBEPOETIN ALFA
     Route: 042
  39. ARANESP [Suspect]
     Active Substance: DARBEPOETIN ALFA
     Dosage: 0.2 UG, WEEKLY (1/W)
     Route: 042
  40. ARANESP [Suspect]
     Active Substance: DARBEPOETIN ALFA
     Dosage: 10 UG, 2/W
     Route: 042
  41. ARANESP [Suspect]
     Active Substance: DARBEPOETIN ALFA
     Dosage: 0.71 UG, 2/W
     Route: 042
  42. ARANESP [Suspect]
     Active Substance: DARBEPOETIN ALFA
     Dosage: 20 ML, WEEKLY (1/W)
     Route: 042
  43. ARANESP [Suspect]
     Active Substance: DARBEPOETIN ALFA
     Route: 042
  44. ARANESP [Suspect]
     Active Substance: DARBEPOETIN ALFA
     Dosage: 10 UG, 2/M
     Route: 042
  45. ARANESP [Suspect]
     Active Substance: DARBEPOETIN ALFA
     Route: 042
  46. ARANESP [Suspect]
     Active Substance: DARBEPOETIN ALFA
     Dosage: 1.42 UG, WEEKLY (1/W)
     Route: 042
  47. ATROVENT [Suspect]
     Active Substance: IPRATROPIUM BROMIDE
     Indication: Sleep disorder therapy
     Dosage: 4 DOSAGE FORM, DAILY
     Route: 055
  48. ATROVENT [Suspect]
     Active Substance: IPRATROPIUM BROMIDE
     Indication: Dyspnoea
     Dosage: 4 DOSAGE FORM, DAILY
     Route: 055
  49. ATROVENT [Suspect]
     Active Substance: IPRATROPIUM BROMIDE
     Indication: Somnolence
     Dosage: 3 DOSAGE FORM, DAILY
     Route: 050
  50. ATROVENT [Suspect]
     Active Substance: IPRATROPIUM BROMIDE
     Dosage: 4 DOSAGE FORM, DAILY
     Route: 065
  51. ATROVENT [Suspect]
     Active Substance: IPRATROPIUM BROMIDE
     Route: 050
  52. ATROVENT [Suspect]
     Active Substance: IPRATROPIUM BROMIDE
     Dosage: 4 DOSAGE FORM, DAILY
     Route: 055
  53. ATROVENT [Suspect]
     Active Substance: IPRATROPIUM BROMIDE
     Dosage: 1 DOSAGE FORM, DAILY
     Route: 055
  54. ATROVENT [Suspect]
     Active Substance: IPRATROPIUM BROMIDE
     Route: 055
  55. ATROVENT [Suspect]
     Active Substance: IPRATROPIUM BROMIDE
     Dosage: 1 DOSAGE FORM, DAILY
     Route: 065
  56. ATROVENT [Suspect]
     Active Substance: IPRATROPIUM BROMIDE
     Dosage: 1 DOSAGE FORM, DAILY
     Route: 050
  57. ATROVENT [Suspect]
     Active Substance: IPRATROPIUM BROMIDE
     Dosage: 4 DOSAGE FORM, DAILY
     Route: 050
  58. ATROVENT [Suspect]
     Active Substance: IPRATROPIUM BROMIDE
     Dosage: 4 DOSAGE FORM, DAILY
     Route: 065
  59. ATROVENT [Suspect]
     Active Substance: IPRATROPIUM BROMIDE
     Dosage: 4 DOSAGE FORM, DAILY
     Route: 065
  60. ATROVENT [Suspect]
     Active Substance: IPRATROPIUM BROMIDE
     Dosage: 4 DOSAGE FORM, DAILY
     Route: 050
  61. ATROVENT [Suspect]
     Active Substance: IPRATROPIUM BROMIDE
     Dosage: 1 DOSAGE FORM, DAILY
     Route: 050
  62. ATROVENT [Suspect]
     Active Substance: IPRATROPIUM BROMIDE
     Dosage: 3 DOSAGE FORM, DAILY
     Route: 050
  63. ATROVENT [Suspect]
     Active Substance: IPRATROPIUM BROMIDE
     Dosage: 4 DOSAGE FORM, DAILY
     Route: 055
  64. ATROVENT [Suspect]
     Active Substance: IPRATROPIUM BROMIDE
     Dosage: 1 DOSAGE FORM, DAILY
     Route: 050
  65. ATROVENT [Suspect]
     Active Substance: IPRATROPIUM BROMIDE
     Dosage: 1 DOSAGE FORM, DAILY
     Route: 065
  66. ATROVENT [Suspect]
     Active Substance: IPRATROPIUM BROMIDE
     Dosage: UNK UNK, QID
     Route: 055
  67. ATROVENT [Suspect]
     Active Substance: IPRATROPIUM BROMIDE
     Dosage: UNK UNK, TID
     Route: 065
  68. FLUTICASONE FUROATE [Suspect]
     Active Substance: FLUTICASONE FUROATE
     Indication: Blood phosphorus increased
     Route: 048
  69. FLUTICASONE FUROATE [Suspect]
     Active Substance: FLUTICASONE FUROATE
     Indication: Nutritional supplementation
     Route: 065
  70. BEROTEC [Suspect]
     Active Substance: FENOTEROL HYDROBROMIDE
     Indication: Product used for unknown indication
     Route: 065
  71. BETA CAROTENE [Suspect]
     Active Substance: BETA CAROTENE
     Indication: Nutritional supplementation
     Route: 042
  72. BETA CAROTENE [Suspect]
     Active Substance: BETA CAROTENE
     Route: 065
  73. BETA CAROTENE [Suspect]
     Active Substance: BETA CAROTENE
     Route: 042
  74. BIOTIN [Suspect]
     Active Substance: BIOTIN
     Indication: Constipation
     Dosage: 17 MG, DAILY
     Route: 042
  75. BIOTIN [Suspect]
     Active Substance: BIOTIN
     Indication: Vitamin supplementation
     Dosage: 5 MG, DAILY
     Route: 042
  76. BISMUTH SUBGALLATE\BUFEXAMAC\LIDOCAINE HYDROCHLORIDE\TITANIUM DIOXIDE [Suspect]
     Active Substance: BISMUTH SUBGALLATE\BUFEXAMAC\LIDOCAINE HYDROCHLORIDE\TITANIUM DIOXIDE
     Indication: Constipation
     Route: 054
  77. BISMUTH SUBGALLATE\BUFEXAMAC\LIDOCAINE HYDROCHLORIDE\TITANIUM DIOXIDE [Suspect]
     Active Substance: BISMUTH SUBGALLATE\BUFEXAMAC\LIDOCAINE HYDROCHLORIDE\TITANIUM DIOXIDE
     Route: 065
  78. BISMUTH SUBGALLATE\BUFEXAMAC\LIDOCAINE HYDROCHLORIDE\TITANIUM DIOXIDE [Suspect]
     Active Substance: BISMUTH SUBGALLATE\BUFEXAMAC\LIDOCAINE HYDROCHLORIDE\TITANIUM DIOXIDE
     Route: 054
  79. BREO ELLIPTA [Suspect]
     Active Substance: FLUTICASONE FUROATE\VILANTEROL TRIFENATATE
     Indication: Nutritional supplementation
     Route: 055
  80. BREO ELLIPTA [Suspect]
     Active Substance: FLUTICASONE FUROATE\VILANTEROL TRIFENATATE
     Dosage: 1 DOSAGE FORM, DAILY
     Route: 055
  81. UNSPECIFIED INGREDIENT [Suspect]
     Active Substance: UNSPECIFIED INGREDIENT
     Indication: Dyspnoea
     Route: 065
  82. UNSPECIFIED INGREDIENT [Suspect]
     Active Substance: UNSPECIFIED INGREDIENT
     Route: 048
  83. HERBALS [Suspect]
     Active Substance: HERBALS
     Indication: Nutritional supplementation
     Route: 042
  84. HERBALS [Suspect]
     Active Substance: HERBALS
     Route: 065
  85. CAPRYLIC ACID [Suspect]
     Active Substance: CAPRYLIC ACID
     Indication: Constipation
     Route: 065
  86. SAFFLOWER [Suspect]
     Active Substance: SAFFLOWER
     Indication: Constipation
     Dosage: 17 G, DAILY
     Route: 065
  87. CEFTRIAXONE SODIUM [Suspect]
     Active Substance: CEFTRIAXONE SODIUM
     Indication: Bacterial infection
     Dosage: 2 G, DAILY
     Route: 042
  88. CEFTRIAXONE SODIUM [Suspect]
     Active Substance: CEFTRIAXONE SODIUM
     Route: 065
  89. CEFTRIAXONE SODIUM [Suspect]
     Active Substance: CEFTRIAXONE SODIUM
     Dosage: 1500 MG, DAILY
     Route: 042
  90. CHLORAMPHENICOL\HYDROCORTISONE ACETATE\METRONIDAZOLE\NATAMYCIN [Suspect]
     Active Substance: CHLORAMPHENICOL\HYDROCORTISONE ACETATE\METRONIDAZOLE\NATAMYCIN
     Indication: Bacterial infection
     Dosage: 500 MG, TID
     Route: 065
  91. CHLORAMPHENICOL\HYDROCORTISONE ACETATE\METRONIDAZOLE\NATAMYCIN [Suspect]
     Active Substance: CHLORAMPHENICOL\HYDROCORTISONE ACETATE\METRONIDAZOLE\NATAMYCIN
     Indication: Anaemia
     Dosage: 1500 MG, TID
     Route: 065
  92. CHLORAMPHENICOL\HYDROCORTISONE ACETATE\METRONIDAZOLE\NATAMYCIN [Suspect]
     Active Substance: CHLORAMPHENICOL\HYDROCORTISONE ACETATE\METRONIDAZOLE\NATAMYCIN
     Route: 065
  93. COUMADIN [Suspect]
     Active Substance: WARFARIN SODIUM
     Indication: Thrombosis
     Dosage: 2 G, DAILY
     Route: 048
  94. COUMADIN [Suspect]
     Active Substance: WARFARIN SODIUM
     Dosage: 2 ML, DAILY
     Route: 048
  95. COUMADIN [Suspect]
     Active Substance: WARFARIN SODIUM
     Route: 048
  96. DEXILANT [Suspect]
     Active Substance: DEXLANSOPRAZOLE
     Indication: Product used for unknown indication
     Dosage: 60 MG, DAILY
     Route: 048
  97. DEXILANT [Suspect]
     Active Substance: DEXLANSOPRAZOLE
     Dosage: 60 MG, DAILY
     Route: 065
  98. DEXPANTHENOL [Suspect]
     Active Substance: DEXPANTHENOL
     Indication: Constipation
     Dosage: 17 G, DAILY
     Route: 065
  99. DEXTROSE\SODIUM CHLORIDE [Suspect]
     Active Substance: DEXTROSE\SODIUM CHLORIDE
     Indication: Nutritional supplementation
     Dosage: 12.5 MG, DAILY
     Route: 042
  100. DEXTROSE\SODIUM CHLORIDE [Suspect]
     Active Substance: DEXTROSE\SODIUM CHLORIDE
     Route: 065
  101. DEXTROSE\SODIUM CHLORIDE [Suspect]
     Active Substance: DEXTROSE\SODIUM CHLORIDE
     Route: 042
  102. DEXTROSE\SODIUM CHLORIDE [Suspect]
     Active Substance: DEXTROSE\SODIUM CHLORIDE
     Route: 042
  103. DEXTROSE [Suspect]
     Active Substance: DEXTROSE MONOHYDRATE
     Indication: Nutritional supplementation
     Route: 042
  104. BETAMETHASONE DIPROPIONATE [Suspect]
     Active Substance: BETAMETHASONE DIPROPIONATE
     Indication: Swelling
     Route: 061
  105. DIPYRONE [Suspect]
     Active Substance: DIPYRONE
     Indication: Vitamin supplementation
     Route: 030
  106. DIPYRONE [Suspect]
     Active Substance: DIPYRONE
     Dosage: 5 MG, DAILY
     Route: 042
  107. DIPYRONE [Suspect]
     Active Substance: DIPYRONE
     Route: 042
  108. DISTIGMINE BROMIDE [Suspect]
     Active Substance: DISTIGMINE BROMIDE
     Indication: Dyspnoea
     Route: 048
  109. DISTIGMINE BROMIDE [Suspect]
     Active Substance: DISTIGMINE BROMIDE
     Route: 065
  110. DISTIGMINE BROMIDE [Suspect]
     Active Substance: DISTIGMINE BROMIDE
     Dosage: 1 U, DAILY
     Route: 048
  111. DISTIGMINE BROMIDE [Suspect]
     Active Substance: DISTIGMINE BROMIDE
     Route: 048
  112. DOCUSATE SODIUM [Suspect]
     Active Substance: DOCUSATE SODIUM
     Indication: Product used for unknown indication
     Route: 065
  113. DULCOLAX (BISACODYL) [Suspect]
     Active Substance: BISACODYL
     Indication: Constipation
     Dosage: 10 MG, DAILY
     Route: 054
  114. DULCOLAX (BISACODYL) [Suspect]
     Active Substance: BISACODYL
     Indication: Ventricular fibrillation
     Route: 054
  115. DULCOLAX (BISACODYL) [Suspect]
     Active Substance: BISACODYL
     Route: 065
  116. DULCOLAX (BISACODYL) [Suspect]
     Active Substance: BISACODYL
     Route: 054
  117. DULCOLAX (BISACODYL) [Suspect]
     Active Substance: BISACODYL
     Dosage: 10 MG, DAILY
     Route: 065
  118. DULCOLAX (BISACODYL) [Suspect]
     Active Substance: BISACODYL
     Route: 054
  119. ERGOCALCIFEROL [Suspect]
     Active Substance: ERGOCALCIFEROL
     Indication: Product used for unknown indication
     Route: 065
  120. FERROUS SUCCINATE [Suspect]
     Active Substance: FERROUS SUCCINATE
     Indication: Iron deficiency
     Dosage: UNK UNK, QID
     Route: 042
  121. FLUTICASONE FUROATE\VILANTEROL TRIFENATATE [Suspect]
     Active Substance: FLUTICASONE FUROATE\VILANTEROL TRIFENATATE
     Indication: Dyspnoea
     Dosage: 1 U, DAILY
     Route: 048
  122. FLUTICASONE FUROATE\VILANTEROL TRIFENATATE [Suspect]
     Active Substance: FLUTICASONE FUROATE\VILANTEROL TRIFENATATE
     Route: 065
  123. FIASP [Suspect]
     Active Substance: INSULIN ASPART
     Indication: Diabetes mellitus
     Route: 065
  124. FIASP [Suspect]
     Active Substance: INSULIN ASPART
     Route: 065
  125. FIASP [Suspect]
     Active Substance: INSULIN ASPART
     Route: 058
  126. ADVAIR HFA [Suspect]
     Active Substance: FLUTICASONE PROPIONATE\SALMETEROL XINAFOATE
     Indication: Nutritional supplementation
     Route: 065
  127. ADVAIR HFA [Suspect]
     Active Substance: FLUTICASONE PROPIONATE\SALMETEROL XINAFOATE
     Indication: Dyspnoea
     Route: 065
  128. FOSRENOL [Suspect]
     Active Substance: LANTHANUM CARBONATE
     Indication: Blood phosphorus increased
     Dosage: 500 MG, DAILY
     Route: 065
  129. FOSRENOL [Suspect]
     Active Substance: LANTHANUM CARBONATE
     Route: 048
  130. FOSRENOL [Suspect]
     Active Substance: LANTHANUM CARBONATE
     Route: 048
  131. FOSRENOL [Suspect]
     Active Substance: LANTHANUM CARBONATE
     Route: 048
  132. FOSRENOL [Suspect]
     Active Substance: LANTHANUM CARBONATE
     Dosage: 500 MG, DAILY
     Route: 048
  133. FOSRENOL [Suspect]
     Active Substance: LANTHANUM CARBONATE
     Dosage: 500 UG, DAILY
     Route: 048
  134. FRAGMIN [Suspect]
     Active Substance: DALTEPARIN SODIUM
     Indication: Thrombosis
     Route: 065
  135. FRAGMIN [Suspect]
     Active Substance: DALTEPARIN SODIUM
     Indication: Pulmonary embolism
     Route: 065
  136. FRAGMIN [Suspect]
     Active Substance: DALTEPARIN SODIUM
     Route: 065
  137. FRAGMIN [Suspect]
     Active Substance: DALTEPARIN SODIUM
     Route: 042
  138. FRAGMIN [Suspect]
     Active Substance: DALTEPARIN SODIUM
     Route: 042
  139. FRAGMIN [Suspect]
     Active Substance: DALTEPARIN SODIUM
     Route: 048
  140. FRAGMIN [Suspect]
     Active Substance: DALTEPARIN SODIUM
     Route: 048
  141. FURAZOLIDONE [Suspect]
     Active Substance: FURAZOLIDONE
     Indication: Product used for unknown indication
     Route: 042
  142. FURAZOLIDONE [Suspect]
     Active Substance: FURAZOLIDONE
     Route: 042
  143. GABAPENTIN [Suspect]
     Active Substance: GABAPENTIN
     Indication: Neuralgia
     Route: 065
  144. GABAPENTIN [Suspect]
     Active Substance: GABAPENTIN
     Indication: Bacterial infection
     Dosage: 100 MG, DAILY
     Route: 048
  145. GABAPENTIN [Suspect]
     Active Substance: GABAPENTIN
     Route: 048
  146. GABAPENTIN [Suspect]
     Active Substance: GABAPENTIN
     Route: 048
  147. GABAPENTIN [Suspect]
     Active Substance: GABAPENTIN
     Route: 065
  148. GABAPENTIN [Suspect]
     Active Substance: GABAPENTIN
     Dosage: 100 MG, DAILY
     Route: 048
  149. NITROGLYCERIN [Suspect]
     Active Substance: NITROGLYCERIN
     Indication: Constipation
     Route: 065
  150. HORSE CHESTNUT [Suspect]
     Active Substance: HORSE CHESTNUT
     Indication: Product used for unknown indication
     Route: 065
  151. HYDROCORTISONE [Suspect]
     Active Substance: HYDROCORTISONE
     Indication: Angioedema
     Route: 051
  152. HYDROMORPHONE HYDROCHLORIDE [Suspect]
     Active Substance: HYDROMORPHONE HYDROCHLORIDE
     Indication: Analgesic therapy
     Dosage: 17 MG, DAILY
     Route: 058
  153. HYDROMORPHONE HYDROCHLORIDE [Suspect]
     Active Substance: HYDROMORPHONE HYDROCHLORIDE
     Dosage: 6 MG, QID
     Route: 058
  154. HYDROMORPHONE HYDROCHLORIDE [Suspect]
     Active Substance: HYDROMORPHONE HYDROCHLORIDE
     Dosage: 96 MG, DAILY
     Route: 058
  155. HYDROMORPHONE HYDROCHLORIDE [Suspect]
     Active Substance: HYDROMORPHONE HYDROCHLORIDE
     Dosage: 1 MG, DAILY
     Route: 058
  156. HYDROMORPHONE HYDROCHLORIDE [Suspect]
     Active Substance: HYDROMORPHONE HYDROCHLORIDE
     Route: 058
  157. HYDROMORPHONE HYDROCHLORIDE [Suspect]
     Active Substance: HYDROMORPHONE HYDROCHLORIDE
     Route: 058
  158. HYDROMORPHONE HYDROCHLORIDE [Suspect]
     Active Substance: HYDROMORPHONE HYDROCHLORIDE
     Route: 058
  159. HYDROMORPHONE HYDROCHLORIDE [Suspect]
     Active Substance: HYDROMORPHONE HYDROCHLORIDE
     Dosage: 6 MG, QID
     Route: 058
  160. HYDROMORPHONE HYDROCHLORIDE [Suspect]
     Active Substance: HYDROMORPHONE HYDROCHLORIDE
     Dosage: 24 MG, QID
     Route: 058
  161. HYDROMORPHONE HYDROCHLORIDE [Suspect]
     Active Substance: HYDROMORPHONE HYDROCHLORIDE
     Route: 058
  162. HYDROMORPHONE HYDROCHLORIDE [Suspect]
     Active Substance: HYDROMORPHONE HYDROCHLORIDE
     Dosage: 96 MG, DAILY
     Route: 058
  163. HYDROMORPHONE HYDROCHLORIDE [Suspect]
     Active Substance: HYDROMORPHONE HYDROCHLORIDE
     Route: 058
  164. HYDROMORPHONE HYDROCHLORIDE [Suspect]
     Active Substance: HYDROMORPHONE HYDROCHLORIDE
     Route: 058
  165. HYDROMORPHONE HYDROCHLORIDE [Suspect]
     Active Substance: HYDROMORPHONE HYDROCHLORIDE
     Route: 065
  166. HYDROMORPHONE HYDROCHLORIDE [Suspect]
     Active Substance: HYDROMORPHONE HYDROCHLORIDE
     Dosage: 24 MG, QID
     Route: 058
  167. HYDROMORPHONE HYDROCHLORIDE [Suspect]
     Active Substance: HYDROMORPHONE HYDROCHLORIDE
     Route: 058
  168. HYDROMORPHONE HYDROCHLORIDE [Suspect]
     Active Substance: HYDROMORPHONE HYDROCHLORIDE
     Dosage: 1 MG, WEEKLY (1/W)
     Route: 058
  169. HYDROMORPHONE HYDROCHLORIDE [Suspect]
     Active Substance: HYDROMORPHONE HYDROCHLORIDE
     Dosage: 24 MG, DAILY
     Route: 058
  170. HYDROMORPHONE HYDROCHLORIDE [Suspect]
     Active Substance: HYDROMORPHONE HYDROCHLORIDE
     Route: 058
  171. HYDROMORPHONE HYDROCHLORIDE [Suspect]
     Active Substance: HYDROMORPHONE HYDROCHLORIDE
     Route: 058
  172. HYDROMORPHONE HYDROCHLORIDE [Suspect]
     Active Substance: HYDROMORPHONE HYDROCHLORIDE
     Route: 058
  173. LEVOPHED [Suspect]
     Active Substance: NOREPINEPHRINE BITARTRATE
     Indication: Stress
     Route: 048
  174. LEVOPHED [Suspect]
     Active Substance: NOREPINEPHRINE BITARTRATE
     Dosage: 3 MG, DAILY
     Route: 048
  175. LEVOPHED [Suspect]
     Active Substance: NOREPINEPHRINE BITARTRATE
     Route: 042
  176. LIDOCAINE [Suspect]
     Active Substance: LIDOCAINE
     Indication: Constipation
     Route: 054
  177. LIDOCAINE [Suspect]
     Active Substance: LIDOCAINE
     Route: 065
  178. POLYETHYLENE GLYCOL 4000 [Suspect]
     Active Substance: POLYETHYLENE GLYCOL 4000
     Indication: Constipation
     Route: 048
  179. POLYETHYLENE GLYCOL 4000 [Suspect]
     Active Substance: POLYETHYLENE GLYCOL 4000
     Dosage: 17 MG, DAILY
     Route: 048
  180. POLYETHYLENE GLYCOL 4000 [Suspect]
     Active Substance: POLYETHYLENE GLYCOL 4000
     Dosage: 17 MG, DAILY
     Route: 048
  181. POLYETHYLENE GLYCOL 4000 [Suspect]
     Active Substance: POLYETHYLENE GLYCOL 4000
     Dosage: 3 MG, WEEKLY (1/W)
     Route: 048
  182. MAGNESIUM OXIDE [Suspect]
     Active Substance: MAGNESIUM OXIDE
     Indication: Constipation
     Route: 065
  183. MAGNESIUM OXIDE [Suspect]
     Active Substance: MAGNESIUM OXIDE
     Route: 054
  184. MAGNESIUM OXIDE [Suspect]
     Active Substance: MAGNESIUM OXIDE
     Route: 065
  185. MANNITOL [Suspect]
     Active Substance: MANNITOL
     Indication: Nutritional supplementation
     Route: 042
  186. MANNITOL [Suspect]
     Active Substance: MANNITOL
     Route: 042
  187. MELATONIN [Suspect]
     Active Substance: MELATONIN
     Indication: Sleep disorder therapy
     Route: 065
  188. MELATONIN [Suspect]
     Active Substance: MELATONIN
     Dosage: 3 MG, DAILY
     Route: 048
  189. MELATONIN [Suspect]
     Active Substance: MELATONIN
     Route: 048
  190. MELATONIN [Suspect]
     Active Substance: MELATONIN
     Dosage: 3 MG, DAILY
     Route: 061
  191. MONOFERRIC [Suspect]
     Active Substance: FERRIC DERISOMALTOSE
     Indication: Nutritional supplementation
     Route: 065
  192. MONOFERRIC [Suspect]
     Active Substance: FERRIC DERISOMALTOSE
     Route: 042
  193. DIETARY SUPPLEMENT [Suspect]
     Active Substance: DIETARY SUPPLEMENT
     Indication: Vitamin supplementation
     Dosage: 17 G, DAILY
     Route: 042
  194. DIETARY SUPPLEMENT [Suspect]
     Active Substance: DIETARY SUPPLEMENT
     Route: 065
  195. DIETARY SUPPLEMENT [Suspect]
     Active Substance: DIETARY SUPPLEMENT
     Dosage: 17 G, DAILY
     Route: 042
  196. DIETARY SUPPLEMENT [Suspect]
     Active Substance: DIETARY SUPPLEMENT
     Route: 042
  197. NOVORAPID [Suspect]
     Active Substance: INSULIN ASPART
     Indication: Diabetes mellitus
     Route: 048
  198. NOVORAPID [Suspect]
     Active Substance: INSULIN ASPART
     Route: 058
  199. NOVORAPID [Suspect]
     Active Substance: INSULIN ASPART
     Route: 065
  200. NOVORAPID [Suspect]
     Active Substance: INSULIN ASPART
     Route: 058
  201. NOVORAPID [Suspect]
     Active Substance: INSULIN ASPART
     Route: 058
  202. ONDANSETRON [Suspect]
     Active Substance: ONDANSETRON
     Indication: Vomiting
     Route: 065
  203. ONDANSETRON [Suspect]
     Active Substance: ONDANSETRON
     Indication: Nausea
     Dosage: 24 MG, TID
     Route: 065
  204. ONDANSETRON [Suspect]
     Active Substance: ONDANSETRON
     Dosage: 12 MG, TID
     Route: 042
  205. ONDANSETRON [Suspect]
     Active Substance: ONDANSETRON
     Dosage: 12 MG, TID
     Route: 042
  206. ONDANSETRON [Suspect]
     Active Substance: ONDANSETRON
     Dosage: 17 MG, DAILY
     Route: 048
  207. ONDANSETRON [Suspect]
     Active Substance: ONDANSETRON
     Route: 042
  208. ONDANSETRON [Suspect]
     Active Substance: ONDANSETRON
     Dosage: 4 MG, TID
     Route: 042
  209. ONDANSETRON [Suspect]
     Active Substance: ONDANSETRON
     Dosage: 8 MG, TID
     Route: 042
  210. ONDANSETRON [Suspect]
     Active Substance: ONDANSETRON
     Route: 042
  211. ONDANSETRON [Suspect]
     Active Substance: ONDANSETRON
     Dosage: 4 MG, DAILY
     Route: 042
  212. ONDANSETRON [Suspect]
     Active Substance: ONDANSETRON
     Dosage: 36 MG, TID
     Route: 042
  213. ONDANSETRON [Suspect]
     Active Substance: ONDANSETRON
     Dosage: 4 MG, DAILY
     Route: 065
  214. ONDANSETRON [Suspect]
     Active Substance: ONDANSETRON
     Dosage: 40 MG, TID
     Route: 042
  215. ONDANSETRON [Suspect]
     Active Substance: ONDANSETRON
     Dosage: 4 MG, TID
     Route: 042
  216. ONDANSETRON [Suspect]
     Active Substance: ONDANSETRON
     Dosage: UNK UNK, TID
     Route: 042
  217. ONDANSETRON [Suspect]
     Active Substance: ONDANSETRON
     Route: 042
  218. ONDANSETRON [Suspect]
     Active Substance: ONDANSETRON
     Dosage: 12 MG, DAILY
     Route: 042
  219. ONDANSETRON [Suspect]
     Active Substance: ONDANSETRON
     Dosage: 24 MG, DAILY
     Route: 042
  220. ONDANSETRON [Suspect]
     Active Substance: ONDANSETRON
     Dosage: 36 MG, TID
     Route: 042
  221. ONDANSETRON [Suspect]
     Active Substance: ONDANSETRON
     Route: 042
  222. OSELTAMIVIR [Suspect]
     Active Substance: OSELTAMIVIR
     Indication: Chronic obstructive pulmonary disease
     Route: 065
  223. OSELTAMIVIR [Suspect]
     Active Substance: OSELTAMIVIR
     Route: 065
  224. OTRIVIN [Suspect]
     Active Substance: XYLOMETAZOLINE
     Indication: Dyspnoea
     Route: 055
  225. OTRIVIN [Suspect]
     Active Substance: XYLOMETAZOLINE
     Route: 065
  226. HERBALS [Suspect]
     Active Substance: HERBALS
     Indication: Nutritional supplementation
     Route: 065
  227. HERBALS [Suspect]
     Active Substance: HERBALS
     Route: 042
  228. HERBALS [Suspect]
     Active Substance: HERBALS
     Route: 042
  229. HERBALS [Suspect]
     Active Substance: HERBALS
     Route: 042
  230. POLYETHYLENE GLYCOL 3350 [Suspect]
     Active Substance: POLYETHYLENE GLYCOL 3350
     Indication: Constipation
     Dosage: 1 DOSAGE FORM, DAILY
     Route: 048
  231. POLYETHYLENE GLYCOL 3350 [Suspect]
     Active Substance: POLYETHYLENE GLYCOL 3350
     Dosage: 3 MG, WEEKLY (1/W)
     Route: 048
  232. POLYETHYLENE GLYCOL 3350 [Suspect]
     Active Substance: POLYETHYLENE GLYCOL 3350
     Dosage: 1 DOSAGE FORM, DAILY
     Route: 048
  233. POLYETHYLENE GLYCOL 3350 [Suspect]
     Active Substance: POLYETHYLENE GLYCOL 3350
     Dosage: 1 DOSAGE FORM, DAILY
     Route: 048
  234. POLYETHYLENE GLYCOL 3350 [Suspect]
     Active Substance: POLYETHYLENE GLYCOL 3350
     Route: 042
  235. POLYETHYLENE GLYCOL 3350 [Suspect]
     Active Substance: POLYETHYLENE GLYCOL 3350
     Dosage: 17 MG, DAILY
     Route: 048
  236. PHYTONADIONE [Suspect]
     Active Substance: PHYTONADIONE
     Indication: Vitamin supplementation
     Route: 017
  237. PHYTONADIONE [Suspect]
     Active Substance: PHYTONADIONE
     Route: 017
  238. PHYTONADIONE [Suspect]
     Active Substance: PHYTONADIONE
     Route: 017
  239. PHYTONADIONE [Suspect]
     Active Substance: PHYTONADIONE
     Route: 017
  240. PHYTONADIONE [Suspect]
     Active Substance: PHYTONADIONE
     Dosage: 5 MG, DAILY
     Route: 017
  241. PHYTONADIONE [Suspect]
     Active Substance: PHYTONADIONE
     Dosage: 1 DOSAGE FORM, DAILY
     Route: 017
  242. PHYTONADIONE [Suspect]
     Active Substance: PHYTONADIONE
     Dosage: 5 MG, DAILY
     Route: 017
  243. NATAMYCIN [Suspect]
     Active Substance: NATAMYCIN
     Indication: Bacterial infection
     Route: 065
  244. POLYETHYLENE GLYCOL 4000 [Suspect]
     Active Substance: POLYETHYLENE GLYCOL 4000
     Indication: Constipation
     Dosage: 17 MG, DAILY
     Route: 048
  245. POLYETHYLENE GLYCOL 4000 [Suspect]
     Active Substance: POLYETHYLENE GLYCOL 4000
     Route: 048
  246. PREVACID [Suspect]
     Active Substance: LANSOPRAZOLE
     Indication: Antacid therapy
     Route: 048
  247. PREVACID [Suspect]
     Active Substance: LANSOPRAZOLE
     Route: 065
  248. PREVACID [Suspect]
     Active Substance: LANSOPRAZOLE
     Dosage: 30 MG, DAILY
     Route: 065
  249. PYRIDOXINE HYDROCHLORIDE [Suspect]
     Active Substance: PYRIDOXINE HYDROCHLORIDE
     Indication: Analgesic therapy
     Route: 048
  250. PYRIDOXINE HYDROCHLORIDE [Suspect]
     Active Substance: PYRIDOXINE HYDROCHLORIDE
     Indication: Vitamin supplementation
     Dosage: 1 DOSAGE FORM, QID
     Route: 048
  251. PYRIDOXINE HYDROCHLORIDE [Suspect]
     Active Substance: PYRIDOXINE HYDROCHLORIDE
     Indication: Constipation
     Route: 065
  252. PYRIDOXINE HYDROCHLORIDE [Suspect]
     Active Substance: PYRIDOXINE HYDROCHLORIDE
     Dosage: 1 DOSAGE FORM, DAILY
     Route: 048
  253. PYRIDOXINE HYDROCHLORIDE [Suspect]
     Active Substance: PYRIDOXINE HYDROCHLORIDE
     Route: 048
  254. PYRIDOXINE HYDROCHLORIDE [Suspect]
     Active Substance: PYRIDOXINE HYDROCHLORIDE
     Route: 048
  255. PYRIDOXINE HYDROCHLORIDE [Suspect]
     Active Substance: PYRIDOXINE HYDROCHLORIDE
     Dosage: 1 DOSAGE FORM, QID
     Route: 048
  256. PYRIDOXINE HYDROCHLORIDE [Suspect]
     Active Substance: PYRIDOXINE HYDROCHLORIDE
     Dosage: 40 MG, DAILY
     Route: 048
  257. ISOPROPYL MYRISTATE [Suspect]
     Active Substance: ISOPROPYL MYRISTATE
     Indication: Constipation
     Route: 005
  258. VITAMIN A PALMITATE [Suspect]
     Active Substance: VITAMIN A PALMITATE
     Indication: Constipation
     Dosage: 17 G, DAILY
     Route: 065
  259. RIBOFLAVIN [Suspect]
     Active Substance: RIBOFLAVIN
     Indication: Product used for unknown indication
     Dosage: 17 G, DAILY
     Route: 048
  260. ALBUTEROL [Suspect]
     Active Substance: ALBUTEROL
     Indication: Chronic obstructive pulmonary disease
     Dosage: 1 DOSAGE FORM, DAILY
     Route: 065
  261. ALBUTEROL [Suspect]
     Active Substance: ALBUTEROL
     Route: 006
  262. ALBUTEROL [Suspect]
     Active Substance: ALBUTEROL
     Dosage: 4 DOSAGE FORM, DAILY
     Route: 055
  263. ALBUTEROL [Suspect]
     Active Substance: ALBUTEROL
     Route: 055
  264. ALBUTEROL [Suspect]
     Active Substance: ALBUTEROL
     Dosage: 4 DOSAGE FORM, DAILY
     Route: 055
  265. ALBUTEROL [Suspect]
     Active Substance: ALBUTEROL
     Route: 055
  266. ALBUTEROL [Suspect]
     Active Substance: ALBUTEROL
     Route: 065
  267. ALBUTEROL [Suspect]
     Active Substance: ALBUTEROL
     Dosage: 4 DOSAGE FORM, QID
     Route: 055
  268. ALBUTEROL [Suspect]
     Active Substance: ALBUTEROL
     Dosage: 1 DOSAGE FORM, QID
     Route: 055
  269. SODIUM [Suspect]
     Active Substance: SODIUM
     Indication: Iron deficiency
     Dosage: 4.64 MG, MONTHLY (1/M)
     Route: 042
  270. SODIUM BICARBONATE [Suspect]
     Active Substance: SODIUM BICARBONATE
     Indication: Nutritional supplementation
     Route: 065
  271. SODIUM CITRATE [Suspect]
     Active Substance: SODIUM CITRATE
     Indication: Anticoagulant therapy
     Route: 065
  272. SODIUM CITRATE [Suspect]
     Active Substance: SODIUM CITRATE
     Indication: Thrombosis
     Dosage: 2.5 MG, DAILY
     Route: 065
  273. SODIUM CITRATE [Suspect]
     Active Substance: SODIUM CITRATE
     Route: 065
  274. SODIUM CITRATE [Suspect]
     Active Substance: SODIUM CITRATE
     Route: 065
  275. SODIUM CITRATE [Suspect]
     Active Substance: SODIUM CITRATE
     Route: 065
  276. SODIUM CITRATE [Suspect]
     Active Substance: SODIUM CITRATE
     Route: 065
  277. SODIUM CITRATE [Suspect]
     Active Substance: SODIUM CITRATE
     Route: 065
  278. SODIUM CITRATE [Suspect]
     Active Substance: SODIUM CITRATE
     Dosage: 2 G, DAILY
     Route: 065
  279. SODIUM FERRIC GLUCONATE COMPLEX [Suspect]
     Active Substance: SODIUM FERRIC GLUCONATE COMPLEX
     Indication: Iron deficiency
     Route: 042
  280. SODIUM FERRIC GLUCONATE COMPLEX [Suspect]
     Active Substance: SODIUM FERRIC GLUCONATE COMPLEX
     Route: 042
  281. SODIUM FERRIC GLUCONATE COMPLEX [Suspect]
     Active Substance: SODIUM FERRIC GLUCONATE COMPLEX
     Route: 065
  282. SODIUM FERRIC GLUCONATE COMPLEX [Suspect]
     Active Substance: SODIUM FERRIC GLUCONATE COMPLEX
     Dosage: 4.64 MG, MONTHLY (1/M)
     Route: 042
  283. SODIUM FERRIC GLUCONATE COMPLEX [Suspect]
     Active Substance: SODIUM FERRIC GLUCONATE COMPLEX
     Dosage: 125 MG, DAILY
     Route: 042
  284. SODIUM FERRIC GLUCONATE COMPLEX [Suspect]
     Active Substance: SODIUM FERRIC GLUCONATE COMPLEX
     Dosage: 1.25 MG, WEEKLY (1/W)
     Route: 042
  285. SODIUM FERRIC GLUCONATE COMPLEX [Suspect]
     Active Substance: SODIUM FERRIC GLUCONATE COMPLEX
     Dosage: 125 MG, MONTHLY (1/M)
     Route: 042
  286. SODIUM FERRIC GLUCONATE COMPLEX [Suspect]
     Active Substance: SODIUM FERRIC GLUCONATE COMPLEX
     Dosage: 17.85 MG, WEEKLY (1/W)
     Route: 042
  287. SODIUM FERRIC GLUCONATE COMPLEX [Suspect]
     Active Substance: SODIUM FERRIC GLUCONATE COMPLEX
     Route: 042
  288. SODIUM FERRIC GLUCONATE COMPLEX [Suspect]
     Active Substance: SODIUM FERRIC GLUCONATE COMPLEX
     Dosage: 125 MG, MONTHLY (1/M)
     Route: 042
  289. SODIUM FERRIC GLUCONATE COMPLEX [Suspect]
     Active Substance: SODIUM FERRIC GLUCONATE COMPLEX
     Route: 042
  290. SODIUM FERRIC GLUCONATE COMPLEX [Suspect]
     Active Substance: SODIUM FERRIC GLUCONATE COMPLEX
     Dosage: 500 MG, WEEKLY (1/W)
     Route: 042
  291. SODIUM PHOSPHATE [Suspect]
     Active Substance: SODIUM PHOSPHATE
     Indication: Constipation
     Route: 065
  292. SODIUM PHOSPHATE [Suspect]
     Active Substance: SODIUM PHOSPHATE
     Route: 054
  293. SODIUM PHOSPHATE [Suspect]
     Active Substance: SODIUM PHOSPHATE
     Route: 054
  294. SODIUM PICOSULFATE [Suspect]
     Active Substance: SODIUM PICOSULFATE
     Indication: Constipation
     Route: 065
  295. SODIUM PICOSULFATE [Suspect]
     Active Substance: SODIUM PICOSULFATE
     Indication: Analgesic therapy
     Route: 054
  296. SODIUM PICOSULFATE [Suspect]
     Active Substance: SODIUM PICOSULFATE
     Indication: Ventricular fibrillation
     Route: 054
  297. SODIUM PICOSULFATE [Suspect]
     Active Substance: SODIUM PICOSULFATE
     Dosage: 12.5 G, MONTHLY (1/M)
     Route: 065
  298. SODIUM PICOSULFATE [Suspect]
     Active Substance: SODIUM PICOSULFATE
     Route: 065
  299. SODIUM PICOSULFATE [Suspect]
     Active Substance: SODIUM PICOSULFATE
     Route: 054
  300. SODIUM PICOSULFATE [Suspect]
     Active Substance: SODIUM PICOSULFATE
     Dosage: 10 MG, DAILY
     Route: 054
  301. SODIUM PICOSULFATE [Suspect]
     Active Substance: SODIUM PICOSULFATE
     Route: 065
  302. SUCROSE [Suspect]
     Active Substance: SUCROSE
     Indication: Iron deficiency
     Dosage: 125 MG, MONTHLY (1/M)
     Route: 065
  303. SUCROSE [Suspect]
     Active Substance: SUCROSE
     Dosage: 4.464 MG, DAILY
     Route: 042
  304. SUCROSE [Suspect]
     Active Substance: SUCROSE
     Dosage: 12 MG, MONTHLY (1/M)
     Route: 042
  305. TRELEGY ELLIPTA [Suspect]
     Active Substance: FLUTICASONE FUROATE\UMECLIDINIUM BROMIDE\VILANTEROL TRIFENATATE
     Indication: Product used for unknown indication
     Route: 055
  306. TRESIBA [Suspect]
     Active Substance: INSULIN DEGLUDEC
     Indication: Diabetes mellitus
     Dosage: 1 DOSAGE FORM, DAILY
     Route: 058
  307. TRESIBA [Suspect]
     Active Substance: INSULIN DEGLUDEC
     Route: 058
  308. TRESIBA [Suspect]
     Active Substance: INSULIN DEGLUDEC
     Route: 058
  309. TRESIBA [Suspect]
     Active Substance: INSULIN DEGLUDEC
     Route: 058
  310. TRESIBA [Suspect]
     Active Substance: INSULIN DEGLUDEC
     Dosage: 1 DOSAGE FORM, DAILY
     Route: 058
  311. TRESIBA [Suspect]
     Active Substance: INSULIN DEGLUDEC
     Dosage: 1 DOSAGE FORM, DAILY
     Route: 058
  312. TRESIBA [Suspect]
     Active Substance: INSULIN DEGLUDEC
     Route: 058
  313. TRESIBA [Suspect]
     Active Substance: INSULIN DEGLUDEC
     Route: 058
  314. UMECLIDINIUM BROMIDE [Suspect]
     Active Substance: UMECLIDINIUM BROMIDE
     Indication: Dyspnoea
     Route: 048
  315. UMECLIDINIUM BROMIDE [Suspect]
     Active Substance: UMECLIDINIUM BROMIDE
     Dosage: 1 U, DAILY
     Route: 048
  316. UMECLIDINIUM BROMIDE [Suspect]
     Active Substance: UMECLIDINIUM BROMIDE
     Dosage: 1 U, DAILY
     Route: 048
  317. UMECLIDINIUM BROMIDE [Suspect]
     Active Substance: UMECLIDINIUM BROMIDE
     Dosage: 1 U, DAILY
     Route: 048
  318. UMECLIDINIUM BROMIDE [Suspect]
     Active Substance: UMECLIDINIUM BROMIDE
     Route: 048
  319. UMECLIDINIUM BROMIDE [Suspect]
     Active Substance: UMECLIDINIUM BROMIDE
     Dosage: 1 U, DAILY
     Route: 048
  320. UMECLIDINIUM BROMIDE [Suspect]
     Active Substance: UMECLIDINIUM BROMIDE
     Dosage: 1 INTERNATIONAL UNIT, QID
     Route: 048
  321. VASOPRESSIN [Suspect]
     Active Substance: VASOPRESSIN
     Indication: Drug therapy
     Route: 065
  322. VASOPRESSIN [Suspect]
     Active Substance: VASOPRESSIN
     Route: 042
  323. VASOPRESSIN [Suspect]
     Active Substance: VASOPRESSIN
     Route: 017
  324. VASOPRESSIN [Suspect]
     Active Substance: VASOPRESSIN
     Dosage: 50 ML, DAILY
     Route: 042
  325. VASOPRESSIN [Suspect]
     Active Substance: VASOPRESSIN
     Dosage: 250 ML, DAILY
     Route: 042
  326. XANTOFYL PALMITATE [Suspect]
     Active Substance: XANTOFYL PALMITATE
     Indication: Nutritional supplementation
     Route: 065
  327. XANTOFYL PALMITATE [Suspect]
     Active Substance: XANTOFYL PALMITATE
     Route: 042
  328. XANTOFYL PALMITATE [Suspect]
     Active Substance: XANTOFYL PALMITATE
     Route: 042
  329. XANTOFYL PALMITATE [Suspect]
     Active Substance: XANTOFYL PALMITATE
     Route: 042
  330. XANTOFYL PALMITATE [Suspect]
     Active Substance: XANTOFYL PALMITATE
     Route: 065
  331. XANTOFYL PALMITATE [Suspect]
     Active Substance: XANTOFYL PALMITATE
     Dosage: 5 MG, DAILY
     Route: 042
  332. ZOCOR [Suspect]
     Active Substance: SIMVASTATIN
     Indication: Blood cholesterol increased
     Dosage: 40 MG, DAILY
     Route: 048
  333. ZOCOR [Suspect]
     Active Substance: SIMVASTATIN
     Route: 065
  334. FENOTEROL HYDROBROMIDE\IPRATROPIUM BROMIDE [Suspect]
     Active Substance: FENOTEROL HYDROBROMIDE\IPRATROPIUM BROMIDE
     Indication: Dyspnoea
     Dosage: 1 DOSAGE FORM, TID
     Route: 065
  335. FENOTEROL HYDROBROMIDE\IPRATROPIUM BROMIDE [Suspect]
     Active Substance: FENOTEROL HYDROBROMIDE\IPRATROPIUM BROMIDE
     Dosage: 1 DOSAGE FORM, DAILY
     Route: 065
  336. FENOTEROL HYDROBROMIDE\IPRATROPIUM BROMIDE [Suspect]
     Active Substance: FENOTEROL HYDROBROMIDE\IPRATROPIUM BROMIDE
     Dosage: 3 DOSAGE FORM, DAILY
     Route: 055
  337. FENOTEROL HYDROBROMIDE\IPRATROPIUM BROMIDE [Suspect]
     Active Substance: FENOTEROL HYDROBROMIDE\IPRATROPIUM BROMIDE
     Dosage: 1 DOSAGE FORM, DAILY
     Route: 065
  338. FENOTEROL HYDROBROMIDE\IPRATROPIUM BROMIDE [Suspect]
     Active Substance: FENOTEROL HYDROBROMIDE\IPRATROPIUM BROMIDE
     Dosage: 1 DOSAGE FORM, DAILY
     Route: 065
  339. FENOTEROL HYDROBROMIDE\IPRATROPIUM BROMIDE [Suspect]
     Active Substance: FENOTEROL HYDROBROMIDE\IPRATROPIUM BROMIDE
     Dosage: 4 INTERNATIONAL UNIT, DAILY
     Route: 050
  340. FENOTEROL HYDROBROMIDE\IPRATROPIUM BROMIDE [Suspect]
     Active Substance: FENOTEROL HYDROBROMIDE\IPRATROPIUM BROMIDE
     Dosage: 1 DOSAGE FORM, TID
     Route: 050
  341. DEXTROSE\HEPARIN SODIUM [Suspect]
     Active Substance: DEXTROSE\HEPARIN SODIUM
     Indication: Anticoagulant therapy
     Route: 017
  342. DEXTROSE\HEPARIN SODIUM [Suspect]
     Active Substance: DEXTROSE\HEPARIN SODIUM
     Route: 042
  343. DEXTROSE\HEPARIN SODIUM [Suspect]
     Active Substance: DEXTROSE\HEPARIN SODIUM
     Dosage: 250 ML, DAILY
     Route: 042
  344. DEXTROSE\HEPARIN SODIUM [Suspect]
     Active Substance: DEXTROSE\HEPARIN SODIUM
     Dosage: 50 ML, DAILY
     Route: 042
  345. DEXTROSE\HEPARIN SODIUM [Suspect]
     Active Substance: DEXTROSE\HEPARIN SODIUM
     Dosage: 50 ML, DAILY
     Route: 065
  346. DEXTROSE\HEPARIN SODIUM [Suspect]
     Active Substance: DEXTROSE\HEPARIN SODIUM
     Route: 017
  347. DEXTROSE\HEPARIN SODIUM [Suspect]
     Active Substance: DEXTROSE\HEPARIN SODIUM
     Route: 042
  348. METAMIZOLE SODIUM [Suspect]
     Active Substance: METAMIZOLE SODIUM
     Indication: Vitamin supplementation
     Route: 065
  349. ROCALTROL [Suspect]
     Active Substance: CALCITRIOL
     Indication: Hypovitaminosis
     Route: 065
  350. LYPRESSIN [Suspect]
     Active Substance: LYPRESSIN
     Indication: Drug therapy
     Route: 042
  351. LYPRESSIN [Suspect]
     Active Substance: LYPRESSIN
     Route: 042
  352. CITRUS FIBER [Suspect]
     Active Substance: CITRUS FIBER
     Indication: Vitamin supplementation
     Route: 042
  353. PHENOXYETHANOL [Suspect]
     Active Substance: PHENOXYETHANOL
     Indication: Constipation
     Dosage: 17 G, DAILY
     Route: 065
  354. HERBALS [Suspect]
     Active Substance: HERBALS
     Indication: Constipation
     Route: 065
  355. AMLODIPINE [Suspect]
     Active Substance: AMLODIPINE BESYLATE
     Indication: Ventricular fibrillation
     Dosage: 150 MG, DAILY
     Route: 065
  356. RAMIPRIL [Suspect]
     Active Substance: RAMIPRIL
     Indication: Product used for unknown indication
     Route: 065

REACTIONS (58)
  - Abdominal distension [Fatal]
  - Abdominal pain [Fatal]
  - Anaemia [Fatal]
  - Appendicitis [Fatal]
  - Appendicolith [Fatal]
  - Ascites [Fatal]
  - Bacterial infection [Fatal]
  - Blood cholesterol increased [Fatal]
  - Blood phosphorus increased [Fatal]
  - Blood uric acid increased [Fatal]
  - Cardiogenic shock [Fatal]
  - Chronic obstructive pulmonary disease [Fatal]
  - Constipation [Fatal]
  - Diabetes mellitus [Fatal]
  - Dry mouth [Fatal]
  - General physical health deterioration [Fatal]
  - Hyperphosphataemia [Fatal]
  - Hyponatraemia [Fatal]
  - Intentional product misuse [Fatal]
  - Iron deficiency [Fatal]
  - Multiple organ dysfunction syndrome [Fatal]
  - Myasthenia gravis [Fatal]
  - Pulmonary embolism [Fatal]
  - Sepsis [Fatal]
  - Sleep disorder [Fatal]
  - Somnolence [Fatal]
  - Stress [Fatal]
  - Swelling [Fatal]
  - Thrombosis [Fatal]
  - Condition aggravated [Fatal]
  - Vomiting [Fatal]
  - Drug therapy [Fatal]
  - Ulcer [Fatal]
  - Analgesic therapy [Fatal]
  - Norepinephrine [Fatal]
  - Drug intolerance [Fatal]
  - Ventricular fibrillation [Fatal]
  - Drug hypersensitivity [Fatal]
  - Nausea [Fatal]
  - Blood creatinine increased [Fatal]
  - Musculoskeletal stiffness [Fatal]
  - Activated partial thromboplastin time prolonged [Fatal]
  - Hypertension [Fatal]
  - Oedema peripheral [Fatal]
  - Pneumonia [Fatal]
  - End stage renal disease [Fatal]
  - Aortic stenosis [Fatal]
  - Pleural effusion [Fatal]
  - Lung opacity [Fatal]
  - Troponin increased [Fatal]
  - Lower respiratory tract infection [Fatal]
  - Blood test abnormal [Fatal]
  - Neuralgia [Fatal]
  - Blood calcium increased [Fatal]
  - Drug ineffective [Fatal]
  - Off label use [Fatal]
  - Liver function test increased [Fatal]
  - Hypophosphataemia [Fatal]

NARRATIVE: CASE EVENT DATE: 20200601
